FAERS Safety Report 15557008 (Version 2)
Quarter: 2019Q1

REPORT INFORMATION
  Report Type: Report from Study
  Country: US (occurrence: US)
  Receive Date: 20181026
  Receipt Date: 20190122
  Transmission Date: 20190417
  Serious: No
  Sender: FDA-Public Use
  Company Number: PHEH2018US044026

PATIENT
  Sex: Male

DRUGS (1)
  1. TRAVATAN Z [Suspect]
     Active Substance: TRAVOPROST
     Indication: GLAUCOMA
     Route: 065

REACTIONS (4)
  - Photophobia [Unknown]
  - Insomnia [Unknown]
  - Drug ineffective [Unknown]
  - Sebaceous gland disorder [Unknown]
